FAERS Safety Report 4828121-X (Version None)
Quarter: 2005Q4

REPORT INFORMATION
  Report Type: 
  Country: None (occurrence: None)
  Receive Date: 20051110
  Receipt Date: 20051102
  Transmission Date: 20060501
  Serious: Yes (Hospitalization)
  Sender: FDA-Public Use
  Company Number: HQWYE383503NOV05

PATIENT
  Age: 5 Month
  Sex: Female

DRUGS (2)
  1. CHILDREN'S ADVIL [Suspect]
     Indication: PROPHYLAXIS
     Dosage: ^1 INTAKE^ ORAL
     Route: 048
     Dates: start: 20051005, end: 20051005
  2. PREVENAR                 (PNEUMO 7-VAL CONJ VAC (DIPHTERIA CRM 197)) [Concomitant]

REACTIONS (5)
  - CONJUNCTIVITIS [None]
  - EAR CANAL ERYTHEMA [None]
  - NEUTROPENIA [None]
  - PYREXIA [None]
  - THROMBOCYTOPENIC PURPURA [None]
